FAERS Safety Report 8384961-4 (Version None)
Quarter: 2012Q2

REPORT INFORMATION
  Report Type: 
  Country: None (occurrence: None)
  Receive Date: 20120524
  Receipt Date: 20120518
  Transmission Date: 20120825
  Serious: Yes (Other)
  Sender: FDA-Public Use
  Company Number: PHHY2012AU019940

PATIENT
  Sex: Female
  Weight: 100 kg

DRUGS (16)
  1. CLOZAPINE [Suspect]
     Dosage: 200 MG, UNK
     Dates: start: 19971003
  2. MAGNESIUM ASPARTATE [Concomitant]
     Dosage: 3 DF, TID (TAKE TWO TABLETS THREE TIMES A DAY)
  3. CLOZARIL [Suspect]
     Dosage: 250 MG, UNK
     Route: 048
     Dates: start: 19971003
  4. CHLORHEXIDINE GLUCONATE [Concomitant]
     Dosage: 10 ML, QID
  5. DOCUSATE [Concomitant]
     Dosage: 2 DF, BID (TAKE TWO TABLETS TWICE A DAY)
  6. GLICLAZIDE [Concomitant]
     Dosage: 2 DF, TAKE TWO TABLETS IN THE MORNING WITH FOOD
  7. VALACICLOVIR [Concomitant]
     Dosage: 1 DF, BID (TAKE 1 TABLET TWICE A DAY)
  8. SULFAMETHOXAZOLE AND TRIMETHOPRIM [Concomitant]
     Dosage: 1 DF, BID (TWICE A DAY WITH FOOD)
  9. SENNA-MINT WAF [Concomitant]
     Dosage: 2 DF, BID (TAKE TWO TABLETS TWICE A DAY)
  10. FLUDROCORTISONE ACETATE [Concomitant]
     Dosage: 1 DF, TAKE ONE TABLET IN THE MORNING
  11. RANITIDINE [Concomitant]
     Indication: ULCER
     Dosage: 1 DF, BID (1 TABLET TWICE A DAY)
  12. NYSTATIN [Concomitant]
     Dosage: 1 ML, QID
     Route: 048
  13. CLOZARIL [Suspect]
     Dosage: 200 MG, UNK
  14. PRAVASTATIN [Concomitant]
     Dosage: 2 DF, TAKE TWO TABLETS AT NIGHT
  15. VALPROATE SODIUM [Concomitant]
     Dosage: 1 DF, TID (TAKE 1 TABLET IN THE MORNING AND TAKE 2 TABLETS AT NIGHT)
  16. POTASSIUM CHLORIDE [Concomitant]
     Dosage: 2 DF, TID (TAKE TWO TABLETS THREE TIMES A DAY WITH FOOD)

REACTIONS (7)
  - NEOPLASM MALIGNANT [None]
  - NEUTROPHIL COUNT INCREASED [None]
  - WHITE BLOOD CELL COUNT DECREASED [None]
  - WHITE BLOOD CELL COUNT INCREASED [None]
  - NEUTROPHIL COUNT DECREASED [None]
  - LYMPHOMA [None]
  - NEUTROPENIA [None]
